FAERS Safety Report 21764266 (Version 1)
Quarter: 2022Q4

REPORT INFORMATION
  Report Type: Spontaneous
  Country: JP (occurrence: JP)
  Receive Date: 20221222
  Receipt Date: 20221222
  Transmission Date: 20230112
  Serious: Yes (Hospitalization)
  Sender: FDA-Public Use
  Company Number: JP-Vifor (International) Inc.-VIT-2022-08722

PATIENT
  Age: 92 Year
  Sex: Male

DRUGS (2)
  1. MIRCERA [Suspect]
     Active Substance: METHOXY POLYETHYLENE GLYCOL-EPOETIN BETA
     Indication: Product used for unknown indication
     Route: 065
  2. DAPRODUSTAT [Concomitant]
     Active Substance: DAPRODUSTAT
     Route: 048

REACTIONS (2)
  - Hospitalisation [Unknown]
  - Dysphagia [Unknown]
